FAERS Safety Report 7299685-4 (Version None)
Quarter: 2011Q1

REPORT INFORMATION
  Report Type: 
  Country: None (occurrence: None)
  Receive Date: 20110217
  Receipt Date: 20110207
  Transmission Date: 20110831
  Serious: Yes (Hospitalization)
  Sender: FDA-Public Use
  Company Number: AU-ABBOTT-10P-008-0684585-00

PATIENT

DRUGS (5)
  1. ISENTRESS [Concomitant]
     Indication: HIV INFECTION
     Route: 048
     Dates: start: 20100813
  2. ACETAMINOPHEN AND TRAMADOL HCL [Concomitant]
     Indication: PAIN
     Dosage: 37.5MG / 325 MG
     Dates: start: 20090201
  3. KALETRA [Suspect]
     Indication: HIV INFECTION
     Dosage: 200/50MG X 2 BID
     Route: 048
     Dates: start: 20100813
  4. TRIMETHOPRIM + SULFAMETHOXAZOLE [Concomitant]
     Indication: ANTIFUNGAL PROPHYLAXIS
     Dosage: 160/80
     Dates: start: 20080725
  5. ACETAMINOPHEN AND TRAMADOL HCL [Concomitant]
     Indication: TIBIA FRACTURE

REACTIONS (1)
  - SKIN GRAFT FAILURE [None]
